FAERS Safety Report 4701368-9 (Version None)
Quarter: 2005Q2

REPORT INFORMATION
  Report Type: 
  Country: None (occurrence: None)
  Receive Date: 20050628
  Receipt Date: 20050615
  Transmission Date: 20051028
  Serious: Yes (Life-Threatening)
  Sender: FDA-Public Use
  Company Number: JP-JNJFOC-20050604060

PATIENT
  Age: 67 Year
  Sex: Female

DRUGS (1)
  1. TAVANIC [Suspect]
     Indication: ASTHMA
     Route: 042
     Dates: start: 20050525, end: 20050525

REACTIONS (2)
  - ANAPHYLACTIC SHOCK [None]
  - STATUS ASTHMATICUS [None]
